FAERS Safety Report 15268121 (Version 1)
Quarter: 2018Q3

REPORT INFORMATION
  Report Type: Spontaneous
  Country: US (occurrence: US)
  Receive Date: 20180812
  Receipt Date: 20180812
  Transmission Date: 20181010
  Serious: No
  Sender: FDA-Public Use
  Company Number: US-ASTRAZENECA-2018SF01098

PATIENT
  Sex: Female

DRUGS (1)
  1. BYDUREON BCISE [Suspect]
     Active Substance: EXENATIDE
     Route: 058

REACTIONS (5)
  - Injection site haemorrhage [Unknown]
  - Rash pruritic [Unknown]
  - Injection site nodule [Unknown]
  - Injection site discolouration [Unknown]
  - Injection site bruising [Unknown]
